FAERS Safety Report 17958691 (Version 1)
Quarter: 2020Q2

REPORT INFORMATION
  Report Type: Report from Study
  Country: None (occurrence: BR)
  Receive Date: 20200630
  Receipt Date: 20200630
  Transmission Date: 20200714
  Serious: Yes (Disabling)
  Sender: FDA-Public Use
  Company Number: BR-ABBVIE-20K-020-3462706-00

PATIENT
  Sex: Male

DRUGS (1)
  1. HUMIRA [Suspect]
     Active Substance: ADALIMUMAB
     Indication: PSORIATIC ARTHROPATHY
     Route: 058
     Dates: start: 20140917

REACTIONS (7)
  - Fear of disease [Unknown]
  - Malaise [Unknown]
  - Psychiatric symptom [Unknown]
  - Panic reaction [Unknown]
  - Anxiety [Unknown]
  - Fear [Unknown]
  - Dyspnoea [Unknown]
